FAERS Safety Report 6299772-3 (Version None)
Quarter: 2009Q3

REPORT INFORMATION
  Report Type: 
  Country: None (occurrence: None)
  Receive Date: 20090806
  Receipt Date: 20090730
  Transmission Date: 20100115
  Serious: Yes (Other)
  Sender: FDA-Public Use
  Company Number: US-BAYER-200926236NA

PATIENT
  Age: 60 Year
  Sex: Male

DRUGS (1)
  1. NEXAVAR [Suspect]
     Indication: HEPATIC NEOPLASM MALIGNANT
     Dosage: TOTAL DAILY DOSE: 200 MG  UNIT DOSE: 200 MG
     Route: 048
     Dates: start: 20090706, end: 20090710

REACTIONS (8)
  - DECREASED APPETITE [None]
  - DEMENTIA [None]
  - DRY MOUTH [None]
  - ENCEPHALOPATHY [None]
  - FATIGUE [None]
  - LARGE INTESTINAL HAEMORRHAGE [None]
  - TREMOR [None]
  - VOMITING [None]
